FAERS Safety Report 20263986 (Version 6)
Quarter: 2022Q2

REPORT INFORMATION
  Report Type: Spontaneous
  Country: IE (occurrence: IE)
  Receive Date: 20211231
  Receipt Date: 20220522
  Transmission Date: 20220721
  Serious: Yes (Other)
  Sender: FDA-Public Use
  Company Number: IE-BRISTOL-MYERS SQUIBB COMPANY-BMS-2021-143537

PATIENT
  Age: 87 Year
  Sex: Male

DRUGS (13)
  1. APIXABAN [Suspect]
     Active Substance: APIXABAN
     Indication: Cerebrovascular accident prophylaxis
     Route: 065
  2. APIXABAN [Suspect]
     Active Substance: APIXABAN
     Route: 065
  3. APIXABAN [Suspect]
     Active Substance: APIXABAN
     Route: 065
  4. COMIRNATY [Suspect]
     Active Substance: TOZINAMERAN
     Indication: COVID-19 immunisation
     Dosage: DOSE 2, SINGLE
  5. COMIRNATY [Suspect]
     Active Substance: TOZINAMERAN
     Dosage: DOSE 3 (BOOSTER), SINGLE
     Route: 065
  6. COMIRNATY [Suspect]
     Active Substance: TOZINAMERAN
     Dosage: DOSE 2, SINGLE
     Route: 065
  7. COMIRNATY [Suspect]
     Active Substance: TOZINAMERAN
     Dosage: DOSE 2, SINGLE
  8. COMIRNATY [Suspect]
     Active Substance: TOZINAMERAN
     Dosage: DOSE 1, SINGLE
  9. COMIRNATY [Suspect]
     Active Substance: TOZINAMERAN
     Dosage: DOSE 3 (BOOSTER), SINGLE
  10. COMIRNATY [Suspect]
     Active Substance: TOZINAMERAN
     Dosage: DOSE 1, SINGLE
     Route: 065
  11. COMIRNATY [Suspect]
     Active Substance: TOZINAMERAN
     Dosage: DOSE 2, SINGLE
     Route: 065
  12. COMIRNATY [Suspect]
     Active Substance: TOZINAMERAN
     Dosage: DOSE 3 (BOOSTER), SINGLE
     Route: 065
  13. COMIRNATY [Suspect]
     Active Substance: TOZINAMERAN
     Route: 065

REACTIONS (3)
  - Cardiac failure congestive [Unknown]
  - COVID-19 [Unknown]
  - Lower respiratory tract infection [Unknown]

NARRATIVE: CASE EVENT DATE: 20211220
